FAERS Safety Report 14431295 (Version 2)
Quarter: 2018Q1

REPORT INFORMATION
  Report Type: Spontaneous
  Country: US (occurrence: US)
  Receive Date: 20180124
  Receipt Date: 20180212
  Transmission Date: 20180509
  Serious: Yes (Hospitalization, Other)
  Sender: FDA-Public Use
  Company Number: US-PFIZER INC-2015349537

PATIENT
  Age: 53 Year
  Sex: Female

DRUGS (1)
  1. CHANTIX [Suspect]
     Active Substance: VARENICLINE TARTRATE
     Dosage: UNK

REACTIONS (7)
  - Aggression [Unknown]
  - Scar [Unknown]
  - Abnormal behaviour [Unknown]
  - Head injury [Unknown]
  - Cerebral disorder [Unknown]
  - Somnambulism [Unknown]
  - Toxicity to various agents [Unknown]
